FAERS Safety Report 23682205 (Version 1)
Quarter: 2024Q1

REPORT INFORMATION
  Report Type: Spontaneous
  Country: US (occurrence: None)
  Receive Date: 20240327
  Receipt Date: 20240327
  Transmission Date: 20240410
  Serious: Yes (Death, Life-Threatening, Other)
  Sender: FDA-Public Use
  Company Number: None

PATIENT
  Age: 63 Year
  Sex: Male
  Weight: 85.5 kg

DRUGS (9)
  1. ZYPREXA [Suspect]
     Active Substance: OLANZAPINE
     Indication: Anxiety
     Route: 048
  2. ZYPREXA [Suspect]
     Active Substance: OLANZAPINE
     Indication: Depression
  3. LEXAPRO [Suspect]
     Active Substance: ESCITALOPRAM OXALATE
  4. ATIVAN [Suspect]
     Active Substance: LORAZEPAM
  5. UNSPECIFIED INGREDIENT [Concomitant]
     Active Substance: UNSPECIFIED INGREDIENT
  6. heart meds [Concomitant]
  7. anxiety + depression meds [Concomitant]
  8. OXYCODONE [Concomitant]
     Active Substance: OXYCODONE\OXYCODONE HYDROCHLORIDE
  9. VITAMINS [Concomitant]
     Active Substance: VITAMINS

REACTIONS (8)
  - Throat cancer [None]
  - Lung neoplasm malignant [None]
  - Atrial fibrillation [None]
  - Gambling [None]
  - Insomnia [None]
  - Depression [None]
  - Completed suicide [None]
  - Natural killer T cell count decreased [None]
